FAERS Safety Report 10700642 (Version 1)
Quarter: 2015Q1

REPORT INFORMATION
  Report Type: Spontaneous
  Country: US (occurrence: None)
  Receive Date: 20150108
  Receipt Date: 20150108
  Transmission Date: 20150721
  Serious: Yes (Hospitalization)
  Sender: FDA-Public Use
  Company Number: None

PATIENT
  Age: 49 Year
  Sex: Male
  Weight: 101.9 kg

DRUGS (6)
  1. HARVONI [Suspect]
     Active Substance: LEDIPASVIR\SOFOSBUVIR
     Indication: HEPATITIS C
     Dates: start: 20140930
  2. LITHIUM CARBONATE. [Concomitant]
     Active Substance: LITHIUM CARBONATE
  3. DIAZEPAM(VALIUM) [Concomitant]
  4. RIBAVIRIN (RIBATAB) 600 MG RIBATAB [Suspect]
     Active Substance: RIBAVIRIN
     Indication: HEPATITIS C
     Route: 048
     Dates: start: 20140930
  5. NAPROXEN(NAPROSYN) [Concomitant]
  6. LEDIPAAVIR-SOFOSBUVIR [Concomitant]

REACTIONS (5)
  - Intentional overdose [None]
  - Agitation [None]
  - Overdose [None]
  - Depressed level of consciousness [None]
  - Toxicity to various agents [None]

NARRATIVE: CASE EVENT DATE: 20141212
